FAERS Safety Report 6645070-5 (Version None)
Quarter: 2010Q1

REPORT INFORMATION
  Report Type: 
  Country: None (occurrence: None)
  Receive Date: 20100322
  Receipt Date: 20080226
  Transmission Date: 20100710
  Serious: Yes (Hospitalization)
  Sender: FDA-Public Use
  Company Number: US-SANOFI-AVENTIS-200811753GDDC

PATIENT
  Age: 60 Year
  Sex: Female
  Weight: 80.3 kg

DRUGS (8)
  1. DOCETAXEL [Suspect]
     Dosage: DOSE UNIT: 75 MG/M**2
     Route: 042
     Dates: start: 20060818, end: 20060818
  2. OXALIPLATIN [Suspect]
     Dosage: DOSE UNIT: 85 MG/M**2
     Route: 042
     Dates: start: 20060818, end: 20060818
  3. BEVACIZUMAB [Suspect]
     Dosage: DOSE UNIT: 15 MG/KG
     Route: 042
     Dates: start: 20060818, end: 20060818
  4. GLYBURIDE [Concomitant]
     Dosage: DOSE AS USED: UNK
  5. CAPTOPRIL [Concomitant]
     Dosage: DOSE AS USED: UNK
  6. ENOXAPARIN SODIUM [Concomitant]
     Dosage: DOSE AS USED: UNK
  7. REGLAN /YUG/ [Concomitant]
     Dosage: DOSE AS USED: UNK
  8. OXYCODONE HCL [Concomitant]
     Dosage: DOSE AS USED: 5/325 MG

REACTIONS (1)
  - HYPOGLYCAEMIA [None]
